FAERS Safety Report 13304306 (Version 2)
Quarter: 2017Q2

REPORT INFORMATION
  Report Type: Spontaneous
  Country: US (occurrence: US)
  Receive Date: 20170308
  Receipt Date: 20170614
  Transmission Date: 20170830
  Serious: No
  Sender: FDA-Public Use
  Company Number: US-TEVA-740974ACC

PATIENT
  Age: 20 Year
  Sex: Female

DRUGS (2)
  1. FENTANYL. [Concomitant]
     Active Substance: FENTANYL
     Dates: start: 201612
  2. HYDROACETATAB-A (ACETAMINOPHEN\HYDROCODONE) [Suspect]
     Active Substance: ACETAMINOPHEN\HYDROCODONE
     Indication: PAIN

REACTIONS (1)
  - Drug ineffective [Unknown]
